FAERS Safety Report 16540434 (Version 1)
Quarter: 2019Q3

REPORT INFORMATION
  Report Type: Spontaneous
  Country: NL (occurrence: NL)
  Receive Date: 20190708
  Receipt Date: 20190708
  Transmission Date: 20191004
  Serious: Yes (Other)
  Sender: FDA-Public Use
  Company Number: NL-MYLANLABS-2019M1061945

PATIENT
  Sex: Female

DRUGS (2)
  1. METOPROLOL. [Suspect]
     Active Substance: METOPROLOL
     Indication: MIGRAINE
     Dosage: 100 MG, UNK
     Route: 065
     Dates: start: 2016
  2. METOPROLOL. [Suspect]
     Active Substance: METOPROLOL
     Indication: PRODUCT USED FOR UNKNOWN INDICATION
     Dosage: 25 MG, UNK
     Route: 065

REACTIONS (14)
  - Heart rate increased [Unknown]
  - Photophobia [Unknown]
  - Nightmare [Unknown]
  - Depression [Unknown]
  - Misophonia [Unknown]
  - Heart rate abnormal [Unknown]
  - Insomnia [Unknown]
  - Syncope [Unknown]
  - Pain [Unknown]
  - Feeling abnormal [Unknown]
  - Panic attack [Unknown]
  - Social avoidant behaviour [Unknown]
  - Blood pressure diastolic increased [Unknown]
  - Fatigue [Unknown]
